FAERS Safety Report 9950459 (Version 1)
Quarter: 2014Q1

REPORT INFORMATION
  Report Type: Report from Study
  Country: US (occurrence: US)
  Receive Date: 20140304
  Receipt Date: 20140304
  Transmission Date: 20141002
  Serious: No
  Sender: FDA-Public Use
  Company Number: US-ABBVIE-13P-163-1072585-00

PATIENT
  Age: 61 Year
  Sex: Female

DRUGS (11)
  1. POTASSIUM [Concomitant]
     Indication: PRODUCT USED FOR UNKNOWN INDICATION
     Dosage: 20 MEQ 2 PACKETS ONCE A DAY
  2. PREDNISONE [Concomitant]
     Indication: PRODUCT USED FOR UNKNOWN INDICATION
     Dosage: 5MG 4 TABLETS ONCE A DAY
  3. PROPRANOLOL [Concomitant]
     Indication: BLOOD PRESSURE
     Dosage: 20MG 1 TABLET TWICE A DAY
  4. METRONIDAZOLE [Concomitant]
     Indication: CROHN^S DISEASE
  5. LIPITOR [Concomitant]
     Indication: PRODUCT USED FOR UNKNOWN INDICATION
  6. METOPROLOL [Concomitant]
     Indication: BLOOD PRESSURE
  7. HUMIRA [Suspect]
     Indication: CROHN^S DISEASE
     Dates: start: 20130102
  8. LANSOPRAZOLE [Concomitant]
     Indication: DYSPEPSIA
     Dosage: 30MG 2 TABLETS ONCE A DAY
  9. MESALAMINE [Concomitant]
     Indication: INFLAMMATORY BOWEL DISEASE
     Dosage: 250MG 4 CAPSULES THREE TIMES A DAY
  10. ONDANSETRON [Concomitant]
     Indication: NAUSEA
  11. PANTOPRAZOLE [Concomitant]
     Indication: PRODUCT USED FOR UNKNOWN INDICATION
     Dosage: 40MG 1 TABLET 30 MINUTES BEFORE EATING

REACTIONS (2)
  - Abdominal pain upper [Not Recovered/Not Resolved]
  - Nausea [Not Recovered/Not Resolved]
